FAERS Safety Report 8383798-X (Version None)
Quarter: 2012Q1

REPORT INFORMATION
  Report Type: 
  Country: None (occurrence: None)
  Receive Date: 20120323
  Receipt Date: 20110301
  Transmission Date: 20120608
  Serious: Yes (Other)
  Sender: FDA-Public Use
  Company Number: 163-21880-11030606

PATIENT
  Age: 76 Year
  Sex: Male
  Weight: 67.586 kg

DRUGS (2)
  1. REVLIMID [Suspect]
     Indication: MULTIPLE MYELOMA
     Dosage: 15 MG, DAILY X 21 DAYS, PO 10 MG, DAILY X 21 DAYS, PO
     Route: 048
     Dates: start: 20100601
  2. REVLIMID [Suspect]
     Indication: MULTIPLE MYELOMA
     Dosage: 15 MG, DAILY X 21 DAYS, PO 10 MG, DAILY X 21 DAYS, PO
     Route: 048
     Dates: start: 20100701, end: 20110228

REACTIONS (1)
  - WHITE BLOOD CELL COUNT DECREASED [None]
